FAERS Safety Report 7236447-8 (Version None)
Quarter: 2011Q1

REPORT INFORMATION
  Report Type: 
  Country: None (occurrence: None)
  Receive Date: 20110120
  Receipt Date: 20110110
  Transmission Date: 20110831
  Serious: Yes (Hospitalization)
  Sender: FDA-Public Use
  Company Number: US-ASTRAZENECA-2011SE01615

PATIENT
  Age: 12142 Day
  Sex: Male
  Weight: 83.9 kg

DRUGS (8)
  1. SEROQUEL [Suspect]
     Route: 048
     Dates: start: 20110106, end: 20110110
  2. DIAZEPAM [Concomitant]
  3. TEGRETOL [Concomitant]
  4. MULTI-VITAMINS [Concomitant]
  5. SEROQUEL [Suspect]
     Indication: DEPRESSION
     Route: 048
     Dates: start: 20101101
  6. CELEXA [Concomitant]
  7. ALPRAZOLAM [Concomitant]
  8. HYDROCODONE [Concomitant]

REACTIONS (1)
  - DRUG ABUSER [None]
